FAERS Safety Report 9434211 (Version 1)
Quarter: 2013Q3

REPORT INFORMATION
  Report Type: Spontaneous
  Country: US (occurrence: None)
  Receive Date: 20130730
  Receipt Date: 20130730
  Transmission Date: 20140515
  Serious: Yes (Other)
  Sender: FDA-Public Use
  Company Number: None

PATIENT
  Age: 31 Year
  Sex: Female
  Weight: 144.5 kg

DRUGS (1)
  1. SPRINTEC [Suspect]
     Indication: CONTRACEPTION
     Dosage: 0.18/0.215/0.25MG/35MCG  1 DAILY  BY MOUTH
     Route: 048
     Dates: start: 20091209, end: 20120827

REACTIONS (2)
  - Drug intolerance [None]
  - Haemorrhage [None]
